FAERS Safety Report 22803052 (Version 2)
Quarter: 2024Q1

REPORT INFORMATION
  Report Type: Spontaneous
  Country: ES (occurrence: ES)
  Receive Date: 20230809
  Receipt Date: 20240219
  Transmission Date: 20240410
  Serious: Yes (Hospitalization, Other)
  Sender: FDA-Public Use
  Company Number: ES-ELI_LILLY_AND_COMPANY-ES202308003859

PATIENT
  Age: 13 Year
  Sex: Female
  Weight: 40.9 kg

DRUGS (7)
  1. INSULIN GLARGINE [Suspect]
     Active Substance: INSULIN GLARGINE
     Indication: Type 1 diabetes mellitus
     Dosage: 15 U, DAILY
     Route: 065
     Dates: start: 20220317
  2. INSULIN GLARGINE [Suspect]
     Active Substance: INSULIN GLARGINE
     Dosage: 16 U, DAILY
     Route: 065
     Dates: start: 20220317
  3. INSULIN GLARGINE [Suspect]
     Active Substance: INSULIN GLARGINE
     Dosage: 15 U, DAILY
     Route: 065
     Dates: start: 20220517
  4. INSULIN GLARGINE [Suspect]
     Active Substance: INSULIN GLARGINE
     Dosage: 13 U, DAILY
     Route: 065
     Dates: start: 20220517
  5. INSULIN GLARGINE [Suspect]
     Active Substance: INSULIN GLARGINE
     Dosage: 16 U, DAILY
     Route: 065
     Dates: start: 20220517
  6. INSULIN GLARGINE [Suspect]
     Active Substance: INSULIN GLARGINE
     Dosage: UNK UNK, UNKNOWN
     Route: 065
     Dates: start: 20230528
  7. NOVORAPID [Suspect]
     Active Substance: INSULIN ASPART
     Indication: Product used for unknown indication
     Dosage: UNK UNK, UNKNOWN
     Route: 065
     Dates: start: 20220317

REACTIONS (3)
  - Overdose [Unknown]
  - Hypoglycaemia [Recovered/Resolved]
  - Ketoacidosis [Unknown]

NARRATIVE: CASE EVENT DATE: 20220317
